FAERS Safety Report 9292371 (Version 2)
Quarter: 2013Q3

REPORT INFORMATION
  Report Type: Report from Study
  Country: ES (occurrence: ES)
  Receive Date: 20130516
  Receipt Date: 20130701
  Transmission Date: 20140515
  Serious: Yes (Hospitalization, Other)
  Sender: FDA-Public Use
  Company Number: ES-GENZYME-MOZO-1000862

PATIENT
  Age: 53 Year
  Sex: Male
  Weight: 72 kg

DRUGS (5)
  1. MOZOBIL [Suspect]
     Indication: ACUTE MYELOID LEUKAEMIA
     Dosage: 11.5 MG, BID (INDUCTION PHASE)
     Route: 042
     Dates: start: 20130417, end: 20130420
  2. FLUDARA [Suspect]
     Indication: ACUTE MYELOID LEUKAEMIA
     Dosage: 57.3 MG, QD (INDUCTION PHASE)
     Route: 042
     Dates: start: 20130417, end: 20130420
  3. IDARUBICIN [Suspect]
     Indication: ACUTE MYELOID LEUKAEMIA
     Dosage: 19.1 MG, INDUCTION PHASE
     Route: 042
     Dates: start: 20130417, end: 20130419
  4. CYTARABINE [Suspect]
     Indication: ACUTE MYELOID LEUKAEMIA
     Dosage: 3820 MG, INDUCTION PHASE
     Route: 042
     Dates: start: 20130417, end: 20130420
  5. G-CSF [Suspect]
     Indication: ACUTE MYELOID LEUKAEMIA
     Dosage: 0.3 MG, INDUCTION PHASE
     Route: 058
     Dates: start: 20130417, end: 20130420

REACTIONS (4)
  - Bone marrow failure [Recovered/Resolved]
  - Escherichia sepsis [Recovered/Resolved]
  - Corynebacterium sepsis [Recovered/Resolved]
  - Lower respiratory tract infection fungal [Recovered/Resolved]
